FAERS Safety Report 10530741 (Version 1)
Quarter: 2014Q4

REPORT INFORMATION
  Report Type: Spontaneous
  Country: US (occurrence: None)
  Receive Date: 20141020
  Receipt Date: 20141020
  Transmission Date: 20150528
  Serious: Yes (Hospitalization)
  Sender: FDA-Public Use
  Company Number: None

PATIENT
  Age: 63 Year
  Sex: Male
  Weight: 74.91 kg

DRUGS (2)
  1. PREDNISONE. [Suspect]
     Active Substance: PREDNISONE
     Dates: end: 20141010
  2. ABIRATERONE ACETATE [Suspect]
     Active Substance: ABIRATERONE ACETATE
     Dates: end: 20141010

REACTIONS (6)
  - Pneumonia [None]
  - Back pain [None]
  - Lymphadenopathy [None]
  - Pulmonary embolism [None]
  - Malignant neoplasm progression [None]
  - Metastases to bone [None]

NARRATIVE: CASE EVENT DATE: 20141010
